FAERS Safety Report 8345940-6 (Version None)
Quarter: 2012Q2

REPORT INFORMATION
  Report Type: 
  Country: None (occurrence: None)
  Receive Date: 20120507
  Receipt Date: 20120425
  Transmission Date: 20120825
  Serious: No
  Sender: FDA-Public Use
  Company Number: 2012040171

PATIENT
  Sex: Female

DRUGS (2)
  1. EDLUAR [Suspect]
     Dosage: 10 MG (1 TABLET,AS REQUIRED),SUBLINGUAL
     Route: 060
     Dates: start: 20120424
  2. EDLUAR [Suspect]
     Indication: INSOMNIA
     Dosage: 10 MG (1 TABLET,AS REQUIRED),ORAL
     Route: 048
     Dates: start: 20120101, end: 20120401

REACTIONS (2)
  - INCORRECT ROUTE OF DRUG ADMINISTRATION [None]
  - WRONG TECHNIQUE IN DRUG USAGE PROCESS [None]
